FAERS Safety Report 8171167-7 (Version None)
Quarter: 2012Q1

REPORT INFORMATION
  Report Type: 
  Country: None (occurrence: None)
  Receive Date: 20120228
  Receipt Date: 20111128
  Transmission Date: 20120608
  Serious: Yes (Hospitalization)
  Sender: FDA-Public Use
  Company Number: US-BRISTOL-MYERS SQUIBB COMPANY-16252371

PATIENT
  Age: 71 Year
  Sex: Male

DRUGS (5)
  1. ASPIRIN [Concomitant]
  2. FENTANYL [Concomitant]
  3. NORVASC [Concomitant]
  4. GLYBURIDE [Concomitant]
  5. ONGLYZA [Suspect]

REACTIONS (1)
  - PANCREATITIS ACUTE [None]
